FAERS Safety Report 7456945-1 (Version None)
Quarter: 2011Q1

REPORT INFORMATION
  Report Type: 
  Country: None (occurrence: None)
  Receive Date: 20110302
  Receipt Date: 20101213
  Transmission Date: 20110831
  Serious: Yes (Life-Threatening, Hospitalization)
  Sender: FDA-Public Use
  Company Number: 023754

PATIENT
  Sex: Female
  Weight: 87 kg

DRUGS (6)
  1. BUSPIRONE HCL [Concomitant]
  2. FLUVOXAMINE [Concomitant]
  3. CIMZIA [Suspect]
     Indication: CROHN'S DISEASE
     Dosage: (400 MG 1X/28 DAYS SUBCUTANEOUS)
     Route: 058
  4. TRAZADOL [Concomitant]
  5. AMBIEN [Suspect]
     Indication: SLEEP DISORDER
  6. SKELAXIN [Concomitant]

REACTIONS (1)
  - SUICIDE ATTEMPT [None]
